FAERS Safety Report 12355358 (Version 2)
Quarter: 2016Q2

REPORT INFORMATION
  Report Type: Spontaneous
  Country: US (occurrence: US)
  Receive Date: 20160511
  Receipt Date: 20160531
  Transmission Date: 20160815
  Serious: Yes (Other)
  Sender: FDA-Public Use
  Company Number: US-SUPERNUS PHARMACEUTICALS, INC.-2016SUP00090

PATIENT
  Age: 70 Year
  Sex: Female
  Weight: 78.5 kg

DRUGS (16)
  1. CALCIUM [Concomitant]
     Active Substance: CALCIUM
     Dosage: UNK, 2X/DAY
  2. LOMOTIL [Concomitant]
     Active Substance: ATROPINE SULFATE\DIPHENOXYLATE HYDROCHLORIDE
     Dosage: 2.5 MG, AS NEEDED
  3. XANAX [Concomitant]
     Active Substance: ALPRAZOLAM
     Dosage: 1 MG, AS NEEDED
  4. GABAPENTIN. [Concomitant]
     Active Substance: GABAPENTIN
  5. PROLIA [Concomitant]
     Active Substance: DENOSUMAB
     Dosage: UNK, 2X/YEAR
     Route: 051
  6. CICLOPIROX CREAM [Concomitant]
     Dosage: UNK, 2X/DAY
     Route: 061
  7. AMBIEN [Concomitant]
     Active Substance: ZOLPIDEM TARTRATE
     Dosage: 10 MG, 1X/DAY
  8. HYDROCODONE [Concomitant]
     Active Substance: HYDROCODONE
     Dosage: UNK, AS NEEDED
  9. TROKENDI XR [Suspect]
     Active Substance: TOPIRAMATE
     Indication: MIGRAINE
     Dosage: 25 MG, 1X/DAY
     Route: 048
     Dates: start: 201601
  10. ATORVASTATIN CALCIUM (LIPITOR) [Concomitant]
     Dosage: 10 MG, 1X/DAY
  11. ALCLOMETASONE CREAM [Concomitant]
     Dosage: UNK, 2X/DAY
     Route: 061
  12. XANAX [Concomitant]
     Active Substance: ALPRAZOLAM
     Dosage: 1 MG, 1X/DAY
  13. BABY ASPIRIN [Concomitant]
     Active Substance: ASPIRIN
     Dosage: 81 MG, 1X/DAY
  14. VITAMIN D [Concomitant]
     Active Substance: CHOLECALCIFEROL
     Dosage: 1000 IU, UNK
  15. HYOSCYAMINE SULFATE. [Concomitant]
     Active Substance: HYOSCYAMINE SULFATE
     Dosage: 0.125 MG, AS NEEDED
  16. ZANTAC [Concomitant]
     Active Substance: RANITIDINE HYDROCHLORIDE

REACTIONS (6)
  - Optic nerve injury [Unknown]
  - Dizziness [Unknown]
  - Off label use [Unknown]
  - Intraocular pressure fluctuation [Recovered/Resolved]
  - Nausea [Unknown]
  - Migraine [Unknown]

NARRATIVE: CASE EVENT DATE: 20160309
